FAERS Safety Report 8977040 (Version 1)
Quarter: 2012Q4

REPORT INFORMATION
  Report Type: Report from Study
  Country: US (occurrence: US)
  Receive Date: 20121220
  Receipt Date: 20121220
  Transmission Date: 20130627
  Serious: Yes (Hospitalization)
  Sender: FDA-Public Use
  Company Number: US-CELGENEUS-AX108-09-0011

PATIENT
  Age: 52 Year
  Sex: Female
  Weight: 73.5 kg

DRUGS (13)
  1. ABRAXANE [Suspect]
     Indication: BREAST CANCER
     Dosage: 177 Milligram
     Route: 041
     Dates: start: 20081017
  2. CARBOPLATIN [Suspect]
     Indication: BREAST CANCER
     Dosage: 100 milligram/sq. meter
     Route: 041
     Dates: start: 20081017
  3. AVASTIN [Suspect]
     Indication: BREAST CANCER
     Dosage: 740 Milligram
     Route: 041
     Dates: start: 20080929
  4. AVASTIN [Suspect]
     Dosage: 177 Milligram
     Route: 041
     Dates: start: 20081217
  5. ATIVAN [Concomitant]
     Indication: DRUG USE FOR UNKNOWN INDICATION
     Route: 065
  6. AMBIEN [Concomitant]
     Indication: DRUG USE FOR UNKNOWN INDICATION
     Route: 065
  7. NEXIUM [Concomitant]
     Indication: DRUG USE FOR UNKNOWN INDICATION
     Route: 065
  8. SYNTHROID [Concomitant]
     Indication: DRUG USE FOR UNKNOWN INDICATION
     Route: 065
  9. TYLENOL [Concomitant]
     Indication: DRUG USE FOR UNKNOWN INDICATION
     Route: 065
  10. SCOPOLAMINE [Concomitant]
     Indication: DRUG USE FOR UNKNOWN INDICATION
     Dosage: PATCH, ZPAK
     Route: 065
  11. Z PAK [Concomitant]
     Route: 065
     Dates: start: 20081217, end: 20081220
  12. TRAZODONE [Concomitant]
     Indication: DRUG USE FOR UNKNOWN INDICATION
     Route: 065
  13. EMEND [Concomitant]
     Indication: DRUG USE FOR UNKNOWN INDICATION
     Route: 065

REACTIONS (4)
  - Blood glucose increased [Recovered/Resolved]
  - Nausea [Recovered/Resolved]
  - Infection [Unknown]
  - Haemoglobin decreased [Unknown]
